FAERS Safety Report 14784692 (Version 1)
Quarter: 2018Q2

REPORT INFORMATION
  Report Type: Spontaneous
  Country: JP (occurrence: JP)
  Receive Date: 20180420
  Receipt Date: 20180420
  Transmission Date: 20180711
  Serious: Yes (Life-Threatening, Other)
  Sender: FDA-Public Use
  Company Number: JP-HQ SPECIALTY-JP-2018INT000053

PATIENT
  Age: 45 Year
  Sex: Female

DRUGS (9)
  1. MITOTANE [Suspect]
     Active Substance: MITOTANE
     Dosage: 3 G, QD (FROM DAYS 118)
     Route: 048
  2. CISPLATIN. [Suspect]
     Active Substance: CISPLATIN
     Indication: ADRENOCORTICAL CARCINOMA
     Dosage: 40 MG/M2, (ON DAYS 2 AND 9 EVERY FOUR WEEKS )
     Route: 065
  3. MITOTANE [Suspect]
     Active Substance: MITOTANE
     Indication: ADRENOCORTICAL CARCINOMA
     Dosage: 1 G, QD (DAYS 17)
     Route: 048
  4. MITOTANE [Suspect]
     Active Substance: MITOTANE
     Dosage: 2 G, QD (DAYS 821)
     Route: 048
  5. DOXORUBICIN [Suspect]
     Active Substance: DOXORUBICIN
     Indication: ADRENOCORTICAL CARCINOMA
     Dosage: 20 MG/M2, (ON DAYS 1 AND 8 EVERY FOUR WEEKS)
     Route: 065
  6. MITOTANE [Suspect]
     Active Substance: MITOTANE
     Dosage: 3 G, QD (DAYS 2228)
     Route: 048
  7. ETOPOSIDE. [Suspect]
     Active Substance: ETOPOSIDE
     Indication: ADRENOCORTICAL CARCINOMA
     Dosage: 100 MG/M2, (ON DAYS 57 EVERY FOUR WEEKS)
     Route: 065
  8. MITOTANE [Suspect]
     Active Substance: MITOTANE
     Dosage: 4 G, QD (FROM DAY 19 ONWARDS)
     Route: 048
  9. MITOTANE [Suspect]
     Active Substance: MITOTANE
     Dosage: REDUCED BY 75%
     Route: 048

REACTIONS (5)
  - Neutropenia [Unknown]
  - Thrombocytopenia [Unknown]
  - Febrile neutropenia [Unknown]
  - Anaemia [Unknown]
  - Fatigue [Unknown]
